FAERS Safety Report 12384709 (Version 9)
Quarter: 2016Q4

REPORT INFORMATION
  Report Type: Spontaneous
  Country: US (occurrence: US)
  Receive Date: 20160519
  Receipt Date: 20161227
  Transmission Date: 20170207
  Serious: Yes (Hospitalization, Other)
  Sender: FDA-Public Use
  Company Number: US-PFIZER INC-2016254470

PATIENT
  Age: 51 Year
  Sex: Male
  Weight: 111 kg

DRUGS (9)
  1. SUTENT [Suspect]
     Active Substance: SUNITINIB MALATE
     Indication: GASTROINTESTINAL STROMAL CANCER
     Dosage: UNK
     Dates: start: 20160620, end: 20160622
  2. SUTENT [Suspect]
     Active Substance: SUNITINIB MALATE
     Dosage: 50 UNK,  (50 MG ONCE A DAY 4 WEEKS ON 2 WEEKS OFF)
     Dates: start: 201603
  3. SUTENT [Suspect]
     Active Substance: SUNITINIB MALATE
     Indication: GASTROINTESTINAL STROMAL TUMOUR
     Dosage: 50 MG, CYCLIC (28 DAYS ON/14 DAYS OFF)
     Dates: start: 20160328
  4. LUNESTA [Concomitant]
     Active Substance: ESZOPICLONE
     Dosage: UNK
  5. FOSAMAX [Concomitant]
     Active Substance: ALENDRONATE SODIUM
     Dosage: UNK
  6. BABY ASPIRIN [Concomitant]
     Active Substance: ASPIRIN
     Dosage: UNK
  7. COUMADIN [Concomitant]
     Active Substance: WARFARIN SODIUM
     Dosage: UNK
  8. CITRACAL-D [Concomitant]
     Dosage: UNK
  9. PRILOSEC [Concomitant]
     Active Substance: OMEPRAZOLE MAGNESIUM
     Dosage: UNK

REACTIONS (33)
  - Abdominal pain [Not Recovered/Not Resolved]
  - Ocular icterus [Unknown]
  - Pain [Recovered/Resolved]
  - Dry skin [Not Recovered/Not Resolved]
  - Skin fissures [Not Recovered/Not Resolved]
  - Chromaturia [Not Recovered/Not Resolved]
  - Fatigue [Not Recovered/Not Resolved]
  - Constipation [Not Recovered/Not Resolved]
  - Malaise [Not Recovered/Not Resolved]
  - Feeling of body temperature change [Recovered/Resolved]
  - Decreased appetite [Not Recovered/Not Resolved]
  - Osteoporosis [Not Recovered/Not Resolved]
  - Gastrooesophageal reflux disease [Not Recovered/Not Resolved]
  - Insomnia [Not Recovered/Not Resolved]
  - Faeces pale [Not Recovered/Not Resolved]
  - Occult blood positive [Recovered/Resolved]
  - Feeling hot [Not Recovered/Not Resolved]
  - Arthralgia [Not Recovered/Not Resolved]
  - Neoplasm progression [Recovered/Resolved]
  - Tongue disorder [Recovered/Resolved]
  - Hypertension [Recovered/Resolved]
  - Flank pain [Not Recovered/Not Resolved]
  - Yellow skin [Unknown]
  - Hyperkeratosis [Recovered/Resolved]
  - Dysgeusia [Not Recovered/Not Resolved]
  - Liver function test increased [Recovered/Resolved]
  - Haemorrhage [Recovered/Resolved]
  - Alopecia [Recovered/Resolved]
  - Pain in extremity [Not Recovered/Not Resolved]
  - White blood cell count decreased [Recovered/Resolved]
  - Haematocrit decreased [Recovered/Resolved]
  - Faeces discoloured [Recovered/Resolved]
  - Jaundice [Recovered/Resolved]

NARRATIVE: CASE EVENT DATE: 201603
